FAERS Safety Report 9004803 (Version 1)
Quarter: 2013Q1

REPORT INFORMATION
  Report Type: Spontaneous
  Country: US (occurrence: None)
  Receive Date: 20130107
  Receipt Date: 20130107
  Transmission Date: 20140127
  Serious: No
  Sender: FDA-Public Use
  Company Number: None

PATIENT
  Sex: Female
  Weight: 49.9 kg

DRUGS (1)
  1. TAMIFLU [Suspect]
     Indication: INFLUENZA
     Dosage: 1 CAPSULE TWICE A DAY PO
     Route: 048
     Dates: start: 29121227, end: 20121227

REACTIONS (2)
  - Nausea [None]
  - Vomiting [None]
